FAERS Safety Report 18657628 (Version 1)
Quarter: 2020Q4

REPORT INFORMATION
  Report Type: Spontaneous
  Country: IT (occurrence: IT)
  Receive Date: 20201223
  Receipt Date: 20201223
  Transmission Date: 20210114
  Serious: Yes (Hospitalization)
  Sender: FDA-Public Use
  Company Number: IT-ALLERGAN-2048866US

PATIENT
  Sex: Female

DRUGS (1)
  1. ESCITALOPRAM OXALATE - BP [Suspect]
     Active Substance: ESCITALOPRAM OXALATE
     Indication: SUICIDE ATTEMPT
     Dosage: 420 MG, UNKNOWN. 420 MG (42 CP OF 10 MG)
     Route: 048
     Dates: start: 20201127, end: 20201127

REACTIONS (4)
  - Tachycardia [Not Recovered/Not Resolved]
  - Product administered to patient of inappropriate age [Unknown]
  - Intentional overdose [Unknown]
  - Suicide attempt [Not Recovered/Not Resolved]

NARRATIVE: CASE EVENT DATE: 20201127
